FAERS Safety Report 8862499 (Version 4)
Quarter: 2013Q4

REPORT INFORMATION
  Report Type: Report from Study
  Country: JP (occurrence: JP)
  Receive Date: 20121026
  Receipt Date: 20131115
  Transmission Date: 20140711
  Serious: Yes (Other)
  Sender: FDA-Public Use
  Company Number: JP-VERTEX PHARMACEUTICAL INC.-2012-023494

PATIENT
  Age: 64 Year
  Sex: Female

DRUGS (16)
  1. VX-950 (TELAPREVIR) [Suspect]
     Indication: CHRONIC HEPATITIS C
     Dosage: 1500 MG, QD
     Route: 048
     Dates: start: 20120706, end: 20120910
  2. PEGINTERFERON ALFA-2B [Suspect]
     Indication: CHRONIC HEPATITIS C
     Dosage: 1.5 ?G/KG, QW
     Route: 058
     Dates: start: 20120706, end: 20121214
  3. RIBAVIRIN [Suspect]
     Indication: CHRONIC HEPATITIS C
     Dosage: 600 MG, QD
     Route: 048
     Dates: start: 20120706, end: 20120716
  4. RIBAVIRIN [Suspect]
     Dosage: 400 MG, QD
     Route: 048
     Dates: start: 20120717, end: 20120726
  5. RIBAVIRIN [Suspect]
     Dosage: 200 MG, QD
     Route: 048
     Dates: start: 20120727, end: 20120927
  6. RIBAVIRIN [Suspect]
     Dosage: 400 MG, QD
     Route: 048
     Dates: start: 20120928, end: 20121220
  7. PREDNISOLONE [Suspect]
     Indication: ADVERSE EVENT
     Dosage: 20 MG, QD
     Route: 048
     Dates: start: 20120910
  8. PREDNISOLONE [Suspect]
     Indication: PROPHYLAXIS
     Dosage: 10 MG, QD
     Route: 048
     Dates: start: 20120921
  9. PREDNISOLONE [Suspect]
     Dosage: 5 MG, QD
     Route: 048
     Dates: start: 20121005
  10. PREDNISOLONE [Suspect]
     Dosage: 2.5 MG, QD
     Route: 048
     Dates: start: 20121012, end: 20121018
  11. POSTERISAN [Concomitant]
     Dosage: 4 G, QD
     Route: 061
     Dates: start: 20120824, end: 20120914
  12. PARIET [Concomitant]
     Dosage: 10 MG, QD
     Route: 048
     Dates: start: 20120921, end: 20121018
  13. LAC-B [Concomitant]
     Dosage: 3 G, QD
     Route: 048
     Dates: start: 20120824, end: 20120914
  14. FLOMOX [Concomitant]
     Dosage: 300 MG, QD
     Route: 048
     Dates: start: 20121011, end: 20121014
  15. LOXONIN [Concomitant]
     Dosage: 60 MG, QD/PRN
     Route: 048
     Dates: start: 20121012
  16. HIRUDOID [Concomitant]
     Dosage: UNK, PRN
     Route: 061

REACTIONS (2)
  - Delirium [Recovered/Resolved]
  - Erythema multiforme [Recovered/Resolved]
